FAERS Safety Report 5902193-3 (Version None)
Quarter: 2008Q3

REPORT INFORMATION
  Report Type: 
  Country: None (occurrence: None)
  Receive Date: 20080929
  Receipt Date: 20080919
  Transmission Date: 20090109
  Serious: Yes (Hospitalization, Other)
  Sender: FDA-Public Use
  Company Number: US-PFIZER INC-2008079461

PATIENT
  Sex: Female
  Weight: 129.09 kg

DRUGS (8)
  1. TIKOSYN [Suspect]
     Indication: ATRIAL FIBRILLATION
     Route: 048
     Dates: start: 20070101
  2. DIFLUCAN [Concomitant]
  3. SYNTHROID [Concomitant]
  4. PLAQUENIL [Concomitant]
  5. COZAAR [Concomitant]
  6. WARFARIN SODIUM [Concomitant]
  7. PREDNISONE [Concomitant]
  8. CLEOCIN [Concomitant]

REACTIONS (3)
  - ASTHMA [None]
  - PNEUMONIA [None]
  - RESPIRATORY TRACT CONGESTION [None]
